FAERS Safety Report 11663604 (Version 1)
Quarter: 2015Q4

REPORT INFORMATION
  Report Type: Spontaneous
  Country: JP (occurrence: JP)
  Receive Date: 20151027
  Receipt Date: 20151027
  Transmission Date: 20160304
  Serious: Yes (Hospitalization)
  Sender: FDA-Public Use
  Company Number: JP-ROCHE-1651326

PATIENT
  Age: 73 Year
  Sex: Female

DRUGS (1)
  1. BONVIVA [Suspect]
     Active Substance: IBANDRONATE SODIUM
     Indication: PRODUCT USED FOR UNKNOWN INDICATION
     Dosage: DOSAGE IS UNCERTAIN.
     Route: 042

REACTIONS (4)
  - Arthralgia [Unknown]
  - Gingival bleeding [Unknown]
  - Gastrointestinal haemorrhage [Recovered/Resolved]
  - Gingival swelling [Unknown]

NARRATIVE: CASE EVENT DATE: 20151006
